FAERS Safety Report 4614225-3 (Version None)
Quarter: 2005Q1

REPORT INFORMATION
  Report Type: 
  Country: None (occurrence: None)
  Receive Date: 20050315
  Receipt Date: 20050222
  Transmission Date: 20050727
  Serious: Yes (Hospitalization)
  Sender: FDA-Public Use
  Company Number: F03200500026

PATIENT
  Age: 67 Year
  Sex: Female

DRUGS (4)
  1. OXALAPLATIN [Suspect]
     Indication: COLON CANCER
     Dosage: ^806 MG 1/2 WEEK^ - INTRAVENOUS NOS
     Route: 042
     Dates: start: 20041013, end: 20041013
  2. FLUOROURACIL [Suspect]
     Indication: COLON CANCER
     Dosage: ^34128 MG 1/2 WEEK^ - INTRAVENOUS NOS
     Route: 042
     Dates: start: 20041208, end: 20041208
  3. IRINOTECAN - SOLUTION [Suspect]
     Indication: COLON CANCER
     Dosage: ^1128 MG 1/2 WEEK^ - INTRAVENOUS NOS
     Route: 042
     Dates: start: 20041208, end: 20041208
  4. LEUCOVORIN CALCIUM [Suspect]
     Indication: COLON CANCER
     Dosage: ^6312 MG 1/2 WEEK^ - INTRAVENOUS NOS
     Route: 042
     Dates: start: 20041208, end: 20041208

REACTIONS (2)
  - COGNITIVE DISORDER [None]
  - ISCHAEMIC STROKE [None]
